FAERS Safety Report 23660104 (Version 1)
Quarter: 2024Q1

REPORT INFORMATION
  Report Type: Spontaneous
  Country: AR (occurrence: AR)
  Receive Date: 20240321
  Receipt Date: 20240321
  Transmission Date: 20240410
  Serious: Yes (Other)
  Sender: FDA-Public Use
  Company Number: AR-PFIZER INC-PV202400038637

PATIENT
  Age: 80 Year
  Sex: Female

DRUGS (2)
  1. IBRANCE [Suspect]
     Active Substance: PALBOCICLIB
  2. FULVESTRANT [Suspect]
     Active Substance: FULVESTRANT

REACTIONS (3)
  - Venous haemorrhage [Unknown]
  - White blood cell count decreased [Unknown]
  - Pruritus [Unknown]
